FAERS Safety Report 8251541-0 (Version None)
Quarter: 2012Q1

REPORT INFORMATION
  Report Type: 
  Country: None (occurrence: None)
  Receive Date: 20120321
  Receipt Date: 20110304
  Transmission Date: 20120608
  Serious: Yes (Other)
  Sender: FDA-Public Use
  Company Number: PHHY2011US18118

PATIENT

DRUGS (4)
  1. TEKTAMLO (ALISKIREN, AMLODIPINE) UNKNOWN [Suspect]
     Dates: start: 20110218
  2. NORVASC [Suspect]
  3. AZOR [Suspect]
  4. ANTIHYPERTENSIVE DRUGS (NO INGREDIENTS/SUBSTANCES) [Concomitant]

REACTIONS (9)
  - FEELING ABNORMAL [None]
  - SINUSITIS [None]
  - PYREXIA [None]
  - BLOOD PRESSURE INCREASED [None]
  - ERYTHEMA [None]
  - ABDOMINAL DISCOMFORT [None]
  - OEDEMA PERIPHERAL [None]
  - EAR DISORDER [None]
  - FLUSHING [None]
